FAERS Safety Report 6946531-1 (Version None)
Quarter: 2010Q3

REPORT INFORMATION
  Report Type: 
  Country: None (occurrence: None)
  Receive Date: 20100827
  Receipt Date: 20090805
  Transmission Date: 20110219
  Serious: No
  Sender: FDA-Public Use
  Company Number: US-ABBOTT-09P-163-0589935-00

PATIENT
  Sex: Male
  Weight: 88.984 kg

DRUGS (6)
  1. NIASPAN [Suspect]
     Indication: BLOOD TRIGLYCERIDES INCREASED
     Dates: start: 20090728, end: 20090801
  2. HYDROCODONE BITARTRATE [Concomitant]
     Indication: ARTHRALGIA
  3. HYDROCODONE BITARTRATE [Concomitant]
     Indication: BACK PAIN
  4. HYDROCODONE BITARTRATE [Concomitant]
     Indication: NECK PAIN
  5. NEXIUM [Concomitant]
     Indication: GASTROOESOPHAGEAL REFLUX DISEASE
  6. ASPIRIN [Concomitant]
     Indication: PRODUCT USED FOR UNKNOWN INDICATION
     Dates: start: 20090728

REACTIONS (4)
  - FLUSHING [None]
  - INSOMNIA [None]
  - PARAESTHESIA [None]
  - RASH MACULAR [None]
